FAERS Safety Report 8233170-8 (Version None)
Quarter: 2012Q1

REPORT INFORMATION
  Report Type: 
  Country: None (occurrence: None)
  Receive Date: 20120326
  Receipt Date: 20120320
  Transmission Date: 20120608
  Serious: No
  Sender: FDA-Public Use
  Company Number: US-PFIZER INC-2012073444

PATIENT
  Sex: Female
  Weight: 58.957 kg

DRUGS (1)
  1. FLAGYL [Suspect]
     Indication: COLITIS
     Dosage: 500 MG, 3X/DAY
     Route: 048
     Dates: end: 20120201

REACTIONS (4)
  - OROPHARYNGEAL PAIN [None]
  - HYPOAESTHESIA [None]
  - DYSPHONIA [None]
  - PARAESTHESIA [None]
